FAERS Safety Report 5423716-7 (Version None)
Quarter: 2007Q3

REPORT INFORMATION
  Report Type: 
  Country: None (occurrence: None)
  Receive Date: 20070727
  Receipt Date: 20060227
  Transmission Date: 20080115
  Serious: Yes (Hospitalization)
  Sender: FDA-Public Use
  Company Number: THYM-10893

PATIENT
  Age: 59 Year
  Sex: Female
  Weight: 83.4619 kg

DRUGS (5)
  1. THYMOGLOBULIN [Suspect]
     Indication: RENAL TRANSPLANT
     Dosage: 125 MG QD IV
     Route: 042
     Dates: start: 20050602, end: 20050604
  2. METHYLPREDNISOLONE 16MG TAB [Concomitant]
  3. INSULIN [Concomitant]
  4. NICARDIPINE HYDROCHLORIDE [Concomitant]
  5. ANTIOBIOTICS [Concomitant]

REACTIONS (2)
  - GRAFT INFECTION [None]
  - KIDNEY TRANSPLANT REJECTION [None]
